FAERS Safety Report 13741885 (Version 1)
Quarter: 2017Q3

REPORT INFORMATION
  Report Type: Other
  Country: GB (occurrence: GB)
  Receive Date: 20170711
  Receipt Date: 20170711
  Transmission Date: 20171127
  Serious: Yes (Other)
  Sender: FDA-Public Use
  Company Number: GB-HERITAGE PHARMACEUTICALS-2017HTG00178

PATIENT
  Age: 69 Year
  Sex: Female
  Weight: 82 kg

DRUGS (25)
  1. ATORVASTATIN [Concomitant]
     Active Substance: ATORVASTATIN
     Dosage: 1 DOSAGE UNITS, 1X/DAY
     Dates: start: 20040220
  2. SPIRONOLACTONE. [Concomitant]
     Active Substance: SPIRONOLACTONE
     Dosage: 1 DOSAGE UNITS, 1X/DAY
     Dates: start: 20110509
  3. EZETIMIBE. [Concomitant]
     Active Substance: EZETIMIBE
     Dosage: 1 DOSAGE UNITS, 1X/DAY
     Dates: start: 20031211
  4. SALIVIX [Concomitant]
     Dosage: UNK, AS DIRECTED
     Dates: start: 20170613
  5. ZINC SULFATE [Concomitant]
     Active Substance: ZINC SULFATE\ZINC SULFATE ANHYDROUS
     Dosage: 1 DOSAGE UNITS, 1X/DAY
     Dates: start: 20141106
  6. FLUTICASONE. [Concomitant]
     Active Substance: FLUTICASONE
     Dosage: 1 DOSAGE UNITS, 2X/DAY
     Dates: start: 20120403
  7. GAVISCON [Concomitant]
     Active Substance: ALUMINUM HYDROXIDE\MAGNESIUM CARBONATE
     Dosage: 2 DOSAGE UNITS, UP TO 4X/DAY
     Dates: start: 20150224
  8. GLYCERYL TRINITRATE [Concomitant]
     Active Substance: NITROGLYCERIN
     Dosage: 1 DOSAGE UNIT, AS NEEDED
     Dates: start: 20030702
  9. NYSTATIN. [Concomitant]
     Active Substance: NYSTATIN
     Dosage: UNK, 4X/DAY
     Dates: start: 20170605, end: 20170612
  10. PARACETAMOL [Concomitant]
     Active Substance: ACETAMINOPHEN
     Dosage: 1 OR 2, 4X/DAY
     Dates: start: 20160919
  11. SODIUM ALGINATE [Concomitant]
     Active Substance: SODIUM ALGINATE
     Dosage: 5 ML TO 10 ML, 4X/DAY
     Dates: start: 20130430
  12. TIOTROPIUM [Concomitant]
     Active Substance: TIOTROPIUM
     Dosage: 1 DOSAGE UNITS, 1X/DAY
     Dates: start: 20160520
  13. WARFARIN SODIUM. [Concomitant]
     Active Substance: WARFARIN SODIUM
     Dosage: 1 DOSAGE UNITS, AS DIRECTED
     Dates: start: 20010410
  14. VERAPAMIL HYDROCHLORIDE. [Suspect]
     Active Substance: VERAPAMIL HYDROCHLORIDE
     Dosage: 1 DOSAGE UNITS, 1X/DAY
     Dates: start: 20150305
  15. FERROUS FUMARATE [Concomitant]
     Active Substance: FERROUS FUMARATE
     Dosage: 1 DOSAGE UNITS, 1X/DAY
     Dates: start: 20130208
  16. SALBUTAMOL [Concomitant]
     Active Substance: ALBUTEROL
     Dosage: 2 DOSAGE UNITS, AS NEEDED
     Dates: start: 20120817
  17. CHLORAMPHENICOL [Concomitant]
     Active Substance: CHLORAMPHENICOL
     Dosage: 1 DOSAGE UNITS, 4X/DAY
     Dates: start: 20170613
  18. VERAPAMIL HYDROCHLORIDE. [Suspect]
     Active Substance: VERAPAMIL HYDROCHLORIDE
     Dosage: UNK
     Dates: start: 20170613
  19. ALENDRONIC ACID [Concomitant]
     Active Substance: ALENDRONIC ACID
     Dosage: 1 DOSAGE UNIT, 1X/WEEK
     Dates: start: 20081203
  20. CANDESARTAN. [Concomitant]
     Active Substance: CANDESARTAN
     Dosage: 1 DOSAGE UNITS, 1X/DAY
     Dates: start: 20110809
  21. CLOTRIMAZOLE. [Concomitant]
     Active Substance: CLOTRIMAZOLE
     Dosage: UNK, 2X/DAY
     Dates: start: 20170613
  22. LANSOPRAZOLE. [Concomitant]
     Active Substance: LANSOPRAZOLE
     Dosage: 1 DOSAGE UNITS, 1X/DAY
     Dates: start: 20081013
  23. PREDNISOLONE. [Concomitant]
     Active Substance: PREDNISOLONE
     Dosage: 1 DOSAGE UNITS, 1X/DAY
     Dates: start: 20170516, end: 20170523
  24. CODEINE PHOSPHATE [Concomitant]
     Active Substance: CODEINE PHOSPHATE
     Dosage: 5 ML, 3X/DAY
     Dates: start: 20170504, end: 20170514
  25. FUROSEMIDE. [Concomitant]
     Active Substance: FUROSEMIDE
     Dosage: 2 DOSAGE UNITS, 1X/DAY
     Dates: start: 20010410

REACTIONS (1)
  - Malaise [Unknown]

NARRATIVE: CASE EVENT DATE: 20170613
